FAERS Safety Report 6546611-9 (Version None)
Quarter: 2010Q1

REPORT INFORMATION
  Report Type: 
  Country: None (occurrence: None)
  Receive Date: 20100119
  Receipt Date: 20100104
  Transmission Date: 20100710
  Serious: Yes (Death, Hospitalization)
  Sender: FDA-Public Use
  Company Number: 2009AC000192

PATIENT
  Age: 78 Year
  Sex: Female

DRUGS (85)
  1. DIGOXIN [Suspect]
     Dosage: 0.125 MG; QD
     Dates: start: 20080222
  2. MEGESTROL ACETATE [Concomitant]
  3. ZOCOR [Concomitant]
  4. PROCRIT [Concomitant]
  5. DURAGESIC-100 [Concomitant]
  6. IMDUR [Concomitant]
  7. ATIVAN [Concomitant]
  8. ACETA/COD [Concomitant]
  9. CLORAZEPATE DIPOTASSIUM [Concomitant]
  10. METOPROLOL [Concomitant]
  11. NORVASC [Concomitant]
  12. PREMPRO [Concomitant]
  13. CHROMAGEN [Concomitant]
  14. ACETAMINOPHEN [Concomitant]
  15. RANITIDINE [Concomitant]
  16. INDERAL [Concomitant]
  17. CIPRO [Concomitant]
  18. FUROSEMIDE [Concomitant]
  19. ERYTHROMYCIN [Concomitant]
  20. DIPHENHYDRAMINE [Concomitant]
  21. SSD CREAM [Concomitant]
  22. SENSIPAR [Concomitant]
  23. FLONASE [Concomitant]
  24. OXYCODONE HCL AND ACETAMINOPHEN [Concomitant]
  25. PANTOPRAZOLE [Concomitant]
  26. ASPIRIN [Concomitant]
  27. RENAL CAPS [Concomitant]
  28. KEPPRA [Concomitant]
  29. HYDROCORTISONE [Concomitant]
  30. ALLANFIL [Concomitant]
  31. CILOSTAZOL [Concomitant]
  32. GLYCOLAX [Concomitant]
  33. HYDROCOD/ACETA [Concomitant]
  34. LIDOCAINE/PRILOCAINE [Concomitant]
  35. RENAGEL [Concomitant]
  36. NITROGLYCERIN [Concomitant]
  37. ENULOSE [Concomitant]
  38. PRILOSEC [Concomitant]
  39. PROMETHAZINE [Concomitant]
  40. FOSRENOL [Concomitant]
  41. METHYLPRED [Concomitant]
  42. DRISDOL [Concomitant]
  43. AZITHROMYCIN [Concomitant]
  44. PULMICORT [Concomitant]
  45. IPRATROPIUM BROMIDE AND ALBUTEROL SULFATE [Concomitant]
  46. HYDROMET [Concomitant]
  47. PROAIR HFA [Concomitant]
  48. PHOSLO [Concomitant]
  49. ENDACOF [Concomitant]
  50. XPECT-PE [Concomitant]
  51. ORPHENADRINE CITRATE [Concomitant]
  52. NEXIUM [Concomitant]
  53. TRIMETH/SULFA [Concomitant]
  54. SULAR [Concomitant]
  55. ISOSORBIDE [Concomitant]
  56. DIOVAN [Concomitant]
  57. COMBIVENT [Concomitant]
  58. CYPROHEPTADINE [Concomitant]
  59. LIPITOR [Concomitant]
  60. LEVAQUIN [Concomitant]
  61. AVELOX [Concomitant]
  62. VOSPIRE [Concomitant]
  63. FOSRENOL [Concomitant]
  64. SODIUM BICARONATE [Concomitant]
  65. AMIODARONE HCL [Concomitant]
  66. AGGRENOX [Concomitant]
  67. CIPROFLOXACIN [Concomitant]
  68. ZYMAR [Concomitant]
  69. DIPHENOXYLATE HCL + ATROPINE SULFATE [Concomitant]
  70. PROTONIX [Concomitant]
  71. COUMADIN [Concomitant]
  72. RENAVIL [Concomitant]
  73. PLETAL [Concomitant]
  74. LORTAB [Concomitant]
  75. MIRALAZ [Concomitant]
  76. LACTULOSE [Concomitant]
  77. OXYGEN [Concomitant]
  78. CEPHALEXIN [Concomitant]
  79. PROPOXYPHEN-APAP [Concomitant]
  80. LONOX [Concomitant]
  81. ALBUTEROL [Concomitant]
  82. XXBROM [Concomitant]
  83. PREDNISOME [Concomitant]
  84. OMEPRAZOLE DR [Concomitant]
  85. METOCLOPRAMIDE [Concomitant]

REACTIONS (49)
  - ABDOMINAL DISTENSION [None]
  - ANAEMIA [None]
  - ANXIETY [None]
  - ASTHENIA [None]
  - ATRIAL FIBRILLATION [None]
  - BEDRIDDEN [None]
  - BLOOD PRESSURE DIASTOLIC DECREASED [None]
  - BREATH SOUNDS ABNORMAL [None]
  - CARDIAC FAILURE CONGESTIVE [None]
  - CARDIAC MURMUR [None]
  - CARDIOACTIVE DRUG LEVEL INCREASED [None]
  - CHEST DISCOMFORT [None]
  - COMMUNICATION DISORDER [None]
  - CONVULSION [None]
  - CORONARY ARTERY DISEASE [None]
  - DECUBITUS ULCER [None]
  - DIARRHOEA [None]
  - DYSKINESIA [None]
  - ECONOMIC PROBLEM [None]
  - ELECTROENCEPHALOGRAM ABNORMAL [None]
  - EYE ROLLING [None]
  - GANGRENE [None]
  - HAEMATOCHEZIA [None]
  - HAEMODIALYSIS [None]
  - HAEMODYNAMIC INSTABILITY [None]
  - HEART RATE INCREASED [None]
  - HYPERKALAEMIA [None]
  - HYPERLIPIDAEMIA [None]
  - HYPERTENSION [None]
  - HYPOPHAGIA [None]
  - IMPAIRED HEALING [None]
  - ISCHAEMIA [None]
  - LEFT VENTRICULAR HYPERTROPHY [None]
  - LETHARGY [None]
  - LEUKOCYTOSIS [None]
  - MULTIPLE INJURIES [None]
  - MUSCULOSKELETAL STIFFNESS [None]
  - OLIGURIA [None]
  - PAIN IN EXTREMITY [None]
  - PULMONARY HYPERTENSION [None]
  - PULSE ABSENT [None]
  - RENAL FAILURE CHRONIC [None]
  - SKIN NECROSIS [None]
  - SOMNOLENCE [None]
  - SURGERY [None]
  - THERAPEUTIC AGENT TOXICITY [None]
  - TRICUSPID VALVE INCOMPETENCE [None]
  - UNEVALUABLE EVENT [None]
  - UNRESPONSIVE TO STIMULI [None]
